FAERS Safety Report 17845679 (Version 1)
Quarter: 2020Q2

REPORT INFORMATION
  Report Type: Report from Study
  Country: None (occurrence: US)
  Receive Date: 20200601
  Receipt Date: 20200601
  Transmission Date: 20200714
  Serious: No
  Sender: FDA-Public Use
  Company Number: US-BIOVITRUM-2019US2455

PATIENT
  Age: 51 Year
  Sex: Female

DRUGS (8)
  1. COLCHICINE. [Concomitant]
     Active Substance: COLCHICINE
  2. XARELTO [Concomitant]
     Active Substance: RIVAROXABAN
  3. PANTOPRAZOLE [Concomitant]
     Active Substance: PANTOPRAZOLE
  4. IMURAN [Concomitant]
     Active Substance: AZATHIOPRINE
  5. KINERET [Suspect]
     Active Substance: ANAKINRA
     Indication: PERICARDITIS
     Route: 058
     Dates: start: 20190723
  6. PREDNISONE. [Concomitant]
     Active Substance: PREDNISONE
  7. TYKOSEN [Concomitant]
  8. ZOLPIDEM [Concomitant]
     Active Substance: ZOLPIDEM TARTRATE

REACTIONS (2)
  - Off label use [Unknown]
  - Burning sensation [Unknown]

NARRATIVE: CASE EVENT DATE: 20190723
